FAERS Safety Report 21161079 (Version 4)
Quarter: 2024Q1

REPORT INFORMATION
  Report Type: Other
  Country: CA (occurrence: None)
  Receive Date: 20220802
  Receipt Date: 20240207
  Transmission Date: 20240410
  Serious: No
  Sender: FDA-Public Use
  Company Number: CA-ROCHE-3151398

PATIENT
  Sex: Female

DRUGS (1)
  1. OCREVUS [Suspect]
     Active Substance: OCRELIZUMAB
     Indication: Relapsing-remitting multiple sclerosis
     Dosage: 300 MG AT DAY 0 AND 14, THEN 600 MG EVERY 6 MONTH
     Route: 042
     Dates: start: 20220113

REACTIONS (5)
  - Fatigue [Not Recovered/Not Resolved]
  - COVID-19 [Unknown]
  - Neuralgia [Not Recovered/Not Resolved]
  - Cognitive disorder [Unknown]
  - Feeling abnormal [Unknown]
